FAERS Safety Report 6380735-4 (Version None)
Quarter: 2009Q3

REPORT INFORMATION
  Report Type: 
  Country: None (occurrence: None)
  Receive Date: 20090929
  Receipt Date: 20090918
  Transmission Date: 20100115
  Serious: Yes (Other)
  Sender: FDA-Public Use
  Company Number: US-PFIZER INC-2009272906

PATIENT
  Sex: Female
  Weight: 80.74 kg

DRUGS (5)
  1. AMLODIPINE BESYLATE [Suspect]
     Indication: HYPERTENSION
     Dosage: 2.5 MG, 1X/DAY
     Route: 048
     Dates: start: 20090422
  2. TOVIAZ [Concomitant]
     Indication: HYPERTONIC BLADDER
     Dosage: 1 MG, UNK
     Route: 048
     Dates: start: 20090901
  3. BENICAR [Concomitant]
     Indication: HYPERTENSION
     Dosage: 40 MG, 1X/DAY
     Route: 048
  4. FEXOFENADINE HYDROCHLORIDE [Concomitant]
     Indication: HYPERSENSITIVITY
     Dosage: FREQUENCY: AS NEEDED,
     Route: 048
  5. VITAMIN D [Concomitant]
     Indication: VITAMIN D DECREASED
     Dosage: UNK

REACTIONS (4)
  - DYSPHAGIA [None]
  - OESOPHAGEAL STENOSIS [None]
  - OESOPHAGITIS [None]
  - PHARYNGEAL DISORDER [None]
